FAERS Safety Report 5049550-8 (Version None)
Quarter: 2006Q3

REPORT INFORMATION
  Report Type: 
  Country: None (occurrence: None)
  Receive Date: 20060706
  Receipt Date: 20060622
  Transmission Date: 20061208
  Serious: Yes (Hospitalization)
  Sender: FDA-Public Use
  Company Number: 06-000588

PATIENT
  Age: 29 Year
  Sex: Female

DRUGS (1)
  1. TACLONEX [Suspect]

REACTIONS (2)
  - ADRENAL SUPPRESSION [None]
  - ADRENOCORTICAL INSUFFICIENCY ACUTE [None]
